FAERS Safety Report 8293976-6 (Version None)
Quarter: 2012Q2

REPORT INFORMATION
  Report Type: 
  Country: None (occurrence: None)
  Receive Date: 20120413
  Receipt Date: 20120413
  Transmission Date: 20120825
  Serious: Yes (Other)
  Sender: FDA-Public Use
  Company Number: None

PATIENT
  Sex: Female
  Weight: 88.4514 kg

DRUGS (15)
  1. FISH OIL [Concomitant]
  2. RESTASIS [Concomitant]
  3. COLACE [Concomitant]
  4. OMEPRAZOLE [Concomitant]
  5. CITALOPRAM [Concomitant]
  6. METOCLOPRAMIDE [Concomitant]
  7. ASPIRIN [Concomitant]
  8. FENOFIBRATE [Suspect]
     Indication: BLOOD TRIGLYCERIDES INCREASED
     Dosage: 160MG TABLET ONE TAB ONCE A DAY PO
     Route: 048
     Dates: start: 20120301
  9. FENOFIBRATE [Suspect]
     Indication: BLOOD TRIGLYCERIDES INCREASED
     Dosage: 160MG TABLET ONE TAB ONCE A DAY PO
     Route: 048
     Dates: start: 20120101
  10. FENOFIBRATE [Suspect]
     Indication: BLOOD TRIGLYCERIDES INCREASED
     Dosage: 160MG TABLET ONE TAB ONCE A DAY PO
     Route: 048
     Dates: start: 20120201
  11. TRAZODONE HCL [Concomitant]
  12. MUCINEX [Concomitant]
  13. SUDAFED 12 HOUR [Concomitant]
  14. NIACIN [Concomitant]
  15. SIMVASTATIN [Concomitant]

REACTIONS (3)
  - GAIT DISTURBANCE [None]
  - MUSCLE SPASMS [None]
  - MYALGIA [None]
